FAERS Safety Report 9625408 (Version 1)
Quarter: 2013Q4

REPORT INFORMATION
  Report Type: Spontaneous
  Country: US (occurrence: US)
  Receive Date: 20131016
  Receipt Date: 20131016
  Transmission Date: 20140711
  Serious: No
  Sender: FDA-Public Use
  Company Number: US-PFIZER INC-2013295462

PATIENT
  Age: 39 Year
  Sex: Female
  Weight: 79.37 kg

DRUGS (5)
  1. LYRICA [Suspect]
     Indication: FIBROMYALGIA
     Dosage: 75 MG, 3X/DAY
     Dates: start: 201208, end: 201208
  2. LYRICA [Suspect]
     Indication: NEURALGIA
     Dosage: 150 MG, 2X/DAY
     Dates: start: 201208, end: 201208
  3. LYRICA [Suspect]
     Dosage: 150 MG, 2X/DAY
     Dates: start: 201208, end: 201208
  4. LYRICA [Suspect]
     Dosage: 150 MG, 3X/DAY
     Dates: start: 201208
  5. BUPRENORPHINE [Concomitant]
     Dosage: UNK

REACTIONS (1)
  - Weight increased [Recovered/Resolved]
